FAERS Safety Report 7313150-7 (Version None)
Quarter: 2011Q1

REPORT INFORMATION
  Report Type: 
  Country: None (occurrence: None)
  Receive Date: 20110216
  Receipt Date: 20110216
  Transmission Date: 20110831
  Serious: No
  Sender: FDA-Public Use
  Company Number: None

PATIENT
  Sex: Female
  Weight: 63.05 kg

DRUGS (1)
  1. XALATAN [Suspect]
     Indication: CEREBROVASCULAR ACCIDENT
     Dosage: 2.5 MG QD OS (EYE)
     Dates: start: 20050101

REACTIONS (1)
  - ECONOMIC PROBLEM [None]
